FAERS Safety Report 12019936 (Version 1)
Quarter: 2016Q1

REPORT INFORMATION
  Report Type: Report from Study
  Country: US (occurrence: US)
  Receive Date: 20160206
  Receipt Date: 20160206
  Transmission Date: 20160526
  Serious: No
  Sender: FDA-Public Use
  Company Number: US-ABBVIE-15K-163-1463491-00

PATIENT
  Sex: Male

DRUGS (4)
  1. HUMIRA [Suspect]
     Active Substance: ADALIMUMAB
     Indication: RHEUMATOID ARTHRITIS
     Route: 065
     Dates: end: 201505
  2. HUMIRA [Suspect]
     Active Substance: ADALIMUMAB
     Route: 065
     Dates: start: 201507
  3. METHOTREXATE [Concomitant]
     Active Substance: METHOTREXATE
     Indication: PRODUCT USED FOR UNKNOWN INDICATION
     Dates: end: 201505
  4. METHOTREXATE [Concomitant]
     Active Substance: METHOTREXATE
     Dates: start: 201507

REACTIONS (4)
  - Lower respiratory tract infection [Recovered/Resolved]
  - Injection site bruising [Unknown]
  - Arthralgia [Unknown]
  - Asthma [Unknown]

NARRATIVE: CASE EVENT DATE: 2015
